FAERS Safety Report 7259763-2 (Version None)
Quarter: 2011Q1

REPORT INFORMATION
  Report Type: 
  Country: None (occurrence: None)
  Receive Date: 20110130
  Receipt Date: 20100901
  Transmission Date: 20110831
  Serious: No
  Sender: FDA-Public Use
  Company Number: US-ABBOTT-10P-163-0668797-00

PATIENT
  Age: 38 Year
  Sex: Male

DRUGS (4)
  1. FLEXERIL [Concomitant]
     Indication: MUSCULOSKELETAL PAIN
  2. IBU [Concomitant]
     Indication: PAIN
  3. HUMIRA [Suspect]
     Indication: PSORIASIS
     Route: 058
  4. FISH OIL [Concomitant]
     Indication: HIGH DENSITY LIPOPROTEIN DECREASED

REACTIONS (3)
  - PSORIASIS [None]
  - PAIN [None]
  - FATIGUE [None]
